FAERS Safety Report 5761325-0 (Version None)
Quarter: 2008Q2

REPORT INFORMATION
  Report Type: 
  Country: None (occurrence: None)
  Receive Date: 20080606
  Receipt Date: 20080515
  Transmission Date: 20081010
  Serious: Yes (Death, Hospitalization)
  Sender: FDA-Public Use
  Company Number: GB-ROCHE-565957

PATIENT
  Sex: Male

DRUGS (2)
  1. CAPECITABINE [Suspect]
     Dosage: 3900 MG Q3W
     Route: 048
     Dates: start: 20080130, end: 20080130
  2. OXALIPLATIN [Suspect]
     Dosage: 130MG/M2 248 MG Q3Q
     Route: 042
     Dates: start: 20080130, end: 20080130

REACTIONS (1)
  - INTESTINAL ISCHAEMIA [None]
